FAERS Safety Report 7287698-8 (Version None)
Quarter: 2011Q1

REPORT INFORMATION
  Report Type: 
  Country: None (occurrence: None)
  Receive Date: 20110211
  Receipt Date: 20110131
  Transmission Date: 20110831
  Serious: Yes (Other)
  Sender: FDA-Public Use
  Company Number: ES-JNJFOC-20110202421

PATIENT
  Age: 19 Year
  Sex: Female

DRUGS (7)
  1. BUSCAPINA [Suspect]
     Indication: PRODUCT USED FOR UNKNOWN INDICATION
     Route: 048
  2. ACETAMINOPHEN [Suspect]
     Indication: PRODUCT USED FOR UNKNOWN INDICATION
     Route: 048
  3. DALACIN [Suspect]
     Indication: PRODUCT USED FOR UNKNOWN INDICATION
     Route: 061
  4. AUGMENTIN '125' [Suspect]
     Indication: PRODUCT USED FOR UNKNOWN INDICATION
     Route: 048
  5. TRAMADOL HYDROCHLORIDE AND ACETAMINOPHEN [Suspect]
     Indication: PRODUCT USED FOR UNKNOWN INDICATION
     Route: 048
  6. EDELSIN(NORGESTIMATE AND ETHINYL ESTRADIOL) [Suspect]
     Indication: CONTRACEPTION
     Route: 048
  7. ENANTYUM [Suspect]
     Indication: PRODUCT USED FOR UNKNOWN INDICATION
     Route: 048

REACTIONS (1)
  - PSEUDOMEMBRANOUS COLITIS [None]
